FAERS Safety Report 13669132 (Version 1)
Quarter: 2017Q2

REPORT INFORMATION
  Report Type: Spontaneous
  Country: FR (occurrence: FR)
  Receive Date: 20170620
  Receipt Date: 20170620
  Transmission Date: 20170830
  Serious: Yes (Hospitalization)
  Sender: FDA-Public Use
  Company Number: FR-PFIZER INC-2017261586

PATIENT
  Age: 3 Year
  Sex: Male
  Weight: 16 kg

DRUGS (11)
  1. BACTRIM [Concomitant]
     Active Substance: SULFAMETHOXAZOLE\TRIMETHOPRIM
     Dosage: UNK
  2. DOLIPRANE [Concomitant]
     Active Substance: ACETAMINOPHEN
     Dosage: UNK UNK, AS NEEDED
  3. INEXIUM /01479302/ [Concomitant]
     Active Substance: ESOMEPRAZOLE MAGNESIUM
     Dosage: 10 MG, DAILY
  4. KIDROLASE [Suspect]
     Active Substance: ASPARAGINASE
     Indication: PRECURSOR T-LYMPHOBLASTIC LYMPHOMA/LEUKAEMIA
     Dosage: 6600 IU, EVERY 3 DAYS (ON DAYS 12, 15, 18, 21, 24, 27, 30 AND 33)
     Route: 042
     Dates: start: 20170425
  5. VINCRISTINE SULFATE. [Suspect]
     Active Substance: VINCRISTINE SULFATE
     Indication: PRECURSOR T-LYMPHOBLASTIC LYMPHOMA/LEUKAEMIA
     Dosage: 1 MG, CYCLIC (ON DAYS 8, 15, 22 AND 29)
     Route: 042
     Dates: start: 20170421
  6. PREDNISONE. [Concomitant]
     Active Substance: PREDNISONE
     Indication: PRECURSOR T-LYMPHOBLASTIC LYMPHOMA/LEUKAEMIA
     Dosage: 20 MG/M2, DAILY (FROM DAYS 8 TO 28)
     Dates: start: 20170421
  7. SPASFON /00765801/ [Concomitant]
     Active Substance: PHLOROGLUCINOL\1,3,5-TRIMETHOXYBENZENE
     Dosage: 80 MG, 2X/DAY (AS NEEDED)
     Dates: start: 20170505
  8. FORLAX [Concomitant]
     Active Substance: POLYETHYLENE GLYCOL 4000
     Dosage: 2 DF, DAILY
  9. CERUBIDINE [Suspect]
     Active Substance: DAUNORUBICIN HYDROCHLORIDE
     Indication: PRECURSOR T-LYMPHOBLASTIC LYMPHOMA/LEUKAEMIA
     Dosage: 19.8 MG, CYCLIC (ON DAYS 8, 15, 22 AND 29)
     Route: 042
     Dates: start: 20170421
  10. MICROLAX /01109601/ [Concomitant]
     Dosage: UNK
     Dates: start: 20170505, end: 20170505
  11. LANSOYL [Concomitant]
     Active Substance: MINERAL OIL
     Dosage: 1 COFFEE SPOON DAILY
     Dates: start: 20170505

REACTIONS (2)
  - Intestinal perforation [Recovered/Resolved with Sequelae]
  - Intestinal obstruction [Recovered/Resolved with Sequelae]

NARRATIVE: CASE EVENT DATE: 20170512
